FAERS Safety Report 16141061 (Version 3)
Quarter: 2019Q2

REPORT INFORMATION
  Report Type: Spontaneous
  Country: JP (occurrence: JP)
  Receive Date: 20190401
  Receipt Date: 20190416
  Transmission Date: 20190711
  Serious: Yes (Other)
  Sender: FDA-Public Use
  Company Number: JP-PFIZER INC-2019134738

PATIENT
  Age: 72 Year
  Sex: Male
  Weight: 62 kg

DRUGS (8)
  1. ZOLPIDEM TARTRATE. [Interacting]
     Active Substance: ZOLPIDEM TARTRATE
     Dosage: 5 MG, DAILY
  2. ETIZOLAM [Interacting]
     Active Substance: ETIZOLAM
     Dosage: 0.5 MG, DAILY
  3. AMLODIPINE BESILATE [Suspect]
     Active Substance: AMLODIPINE BESYLATE
     Dosage: 5 MG, DAILY
  4. VITAMIN E [Concomitant]
     Active Substance: .ALPHA.-TOCOPHEROL
     Dosage: 600 MG, DAILY
  5. OLOPATADINE. [Concomitant]
     Active Substance: OLOPATADINE
     Dosage: 10 MG, DAILY
  6. BETAMETHASONE. [Interacting]
     Active Substance: BETAMETHASONE
     Indication: ANOSMIA
     Dosage: UNK, 1X/DAY (IN BOTH NOSTRILS FOR THE FIRST MONTH,NASAL DROPS)
     Route: 045
  7. BETAMETHASONE. [Interacting]
     Active Substance: BETAMETHASONE
     Dosage: UNK, ALTERNATE DAY (FOLLOWED BY ONCE EVERY 2 DAYS AFTER THE FIRST MONTH)
     Route: 045
  8. METHYLCOBALAMIN. [Concomitant]
     Active Substance: METHYLCOBALAMIN
     Dosage: 1500 MG, DAILY

REACTIONS (2)
  - Drug interaction [Recovering/Resolving]
  - Cushing^s syndrome [Recovering/Resolving]
